FAERS Safety Report 6261008-7 (Version None)
Quarter: 2009Q3

REPORT INFORMATION
  Report Type: 
  Country: None (occurrence: None)
  Receive Date: 20090709
  Receipt Date: 20090629
  Transmission Date: 20100115
  Serious: Yes (Death, Hospitalization, Other)
  Sender: FDA-Public Use
  Company Number: US-BIOGENIDEC-2009BI019929

PATIENT
  Age: 61 Year
  Sex: Female
  Weight: 90 kg

DRUGS (2)
  1. AVONEX [Suspect]
     Indication: MULTIPLE SCLEROSIS
     Route: 030
     Dates: start: 19990101
  2. BETASERON [Concomitant]
     Indication: MULTIPLE SCLEROSIS
     Dates: end: 20050817

REACTIONS (4)
  - INTESTINAL OBSTRUCTION [None]
  - OVARIAN CANCER [None]
  - PULMONARY THROMBOSIS [None]
  - THROMBOSIS [None]
